FAERS Safety Report 9678999 (Version 1)
Quarter: 2013Q4

REPORT INFORMATION
  Report Type: Spontaneous
  Country: US (occurrence: None)
  Receive Date: 20131107
  Receipt Date: 20131107
  Transmission Date: 20140711
  Serious: Yes (Hospitalization)
  Sender: FDA-Public Use
  Company Number: ACO_35420_2013

PATIENT
  Sex: Female

DRUGS (6)
  1. AMPYRA [Suspect]
     Indication: GAIT DISTURBANCE
     Route: 048
     Dates: start: 20110408, end: 2013
  2. AVONEX (INTERFERON BETA-1A) [Concomitant]
  3. BONIVA (IBANDRONATE SODIUIM) [Concomitant]
  4. NORVASC (AMLODIPINE BESILATE) [Concomitant]
  5. B COMPLEX (VITAMIN B COMPLEX) [Concomitant]
  6. VITAMIN D (ERGOCALCIFEROL) [Concomitant]

REACTIONS (9)
  - Metastatic renal cell carcinoma [None]
  - Gait disturbance [None]
  - Muscular weakness [None]
  - Feeling abnormal [None]
  - Nasopharyngitis [None]
  - Metastases to lung [None]
  - Metastases to liver [None]
  - Metastases to lymph nodes [None]
  - Gait disturbance [None]
